FAERS Safety Report 10371099 (Version 1)
Quarter: 2014Q3

REPORT INFORMATION
  Report Type: Spontaneous
  Country: US (occurrence: None)
  Receive Date: 20140806
  Receipt Date: 20140806
  Transmission Date: 20150326
  Serious: Yes (Hospitalization, Other)
  Sender: FDA-Public Use
  Company Number: 2010S1000454

PATIENT
  Age: 66 Year
  Sex: Male
  Weight: 79 kg

DRUGS (10)
  1. PROSCAR [Concomitant]
     Active Substance: FINASTERIDE
  2. PREVACID [Concomitant]
     Active Substance: LANSOPRAZOLE
  3. LEVAQUIN [Concomitant]
     Active Substance: LEVOFLOXACIN
  4. ATENOLOL. [Concomitant]
     Active Substance: ATENOLOL
  5. TORADOL [Concomitant]
     Active Substance: KETOROLAC TROMETHAMINE
  6. POTASSIUM SUPPLEMTENTS (POTASSIUM) [Concomitant]
  7. ASPIRIN (ACETYLSALICYLIC ACID) [Concomitant]
     Active Substance: ASPIRIN
  8. METOCLOPRAM (METOCLOPRAMIDE HYDROCHLORIDE) [Concomitant]
  9. PHOSPHO-SODA [Suspect]
     Active Substance: SODIUM PHOSPHATE, DIBASIC\SODIUM PHOSPHATE, MONOBASIC
     Indication: RADICAL PROSTATECTOMY
     Route: 048
     Dates: start: 20050315
  10. FLOMAX [Concomitant]
     Active Substance: TAMSULOSIN HYDROCHLORIDE

REACTIONS (12)
  - Renal failure chronic [None]
  - Secretion discharge [None]
  - Renal tubular necrosis [None]
  - Renal cyst [None]
  - Spinal cord neoplasm [None]
  - Renal failure acute [None]
  - Renal vessel disorder [None]
  - Muscular weakness [None]
  - Myelopathy [None]
  - Incision site complication [None]
  - Blood uric acid increased [None]
  - Hypoaesthesia [None]

NARRATIVE: CASE EVENT DATE: 20050317
